FAERS Safety Report 10211729 (Version 1)
Quarter: 2014Q2

REPORT INFORMATION
  Report Type: Spontaneous
  Country: DE (occurrence: None)
  Receive Date: 20140528
  Receipt Date: 20140528
  Transmission Date: 20141212
  Serious: Yes (Hospitalization, Other)
  Sender: FDA-Public Use
  Company Number: IPC201405-000231

PATIENT
  Age: 54 Year
  Sex: Male

DRUGS (3)
  1. ALLOPURINOL [Suspect]
  2. PROPRANOLOL HYDROCHLORIDE (PROPRANOLOL HYDROCHLORIDE) (PROPRANOLOL HYDROCHLORIDE) [Suspect]
  3. METAMIZOLE [Suspect]

REACTIONS (8)
  - Agranulocytosis [None]
  - Pneumonia aspiration [None]
  - Sepsis [None]
  - Megacolon [None]
  - Device related infection [None]
  - Pseudomonas infection [None]
  - Streptococcal infection [None]
  - Enterococcal infection [None]
